FAERS Safety Report 8968743 (Version 1)
Quarter: 2012Q4

REPORT INFORMATION
  Report Type: 
  Country: US (occurrence: US)
  Receive Date: 20121218
  Receipt Date: 20121218
  Transmission Date: 20130627
  Serious: Yes (Other)
  Sender: FDA-Public Use
  Company Number: US-BRISTOL-MYERS SQUIBB COMPANY-16720138

PATIENT
  Age: 31 Year
  Sex: Female

DRUGS (4)
  1. ABILIFY TABS 5 MG [Suspect]
     Indication: BIPOLAR DISORDER
     Dates: start: 2012
  2. SEROQUEL [Concomitant]
  3. LAMICTAL [Concomitant]
  4. FLUOXETINE [Concomitant]

REACTIONS (1)
  - Convulsion [Unknown]
